FAERS Safety Report 8052849-4 (Version None)
Quarter: 2012Q1

REPORT INFORMATION
  Report Type: 
  Country: None (occurrence: None)
  Receive Date: 20120118
  Receipt Date: 20120116
  Transmission Date: 20120608
  Serious: Yes (Death)
  Sender: FDA-Public Use
  Company Number: PHHY2012CO003946

PATIENT

DRUGS (1)
  1. TASIGNA [Suspect]
     Dosage: 200 MG, DAILY
     Route: 048

REACTIONS (1)
  - PLEURAL EFFUSION [None]
